FAERS Safety Report 9521545 (Version 1)
Quarter: 2013Q3

REPORT INFORMATION
  Report Type: Spontaneous
  Country: US (occurrence: None)
  Receive Date: 20130911
  Receipt Date: 20130911
  Transmission Date: 20140515
  Serious: No
  Sender: FDA-Public Use
  Company Number: AEUSA201300141

PATIENT
  Age: 35 Year
  Sex: Male
  Weight: 89.81 kg

DRUGS (3)
  1. GAMUNEX-C (10 PCT) [Suspect]
     Indication: MULTIFOCAL MOTOR NEUROPATHY
     Dosage: 90 GM; QOW;
     Dates: start: 201212
  2. DIPHENHYDRAMINE HYDROCHLORIDE [Concomitant]
  3. PARACETAMOL [Concomitant]

REACTIONS (2)
  - White blood cell count decreased [None]
  - Red blood cell count decreased [None]
